FAERS Safety Report 10283519 (Version 1)
Quarter: 2014Q3

REPORT INFORMATION
  Report Type: Spontaneous
  Country: DE (occurrence: DE)
  Receive Date: 20140708
  Receipt Date: 20140708
  Transmission Date: 20150326
  Serious: Yes (Other)
  Sender: FDA-Public Use
  Company Number: DE-TEVA-492144GER

PATIENT
  Age: 46 Year
  Sex: Female
  Weight: 76 kg

DRUGS (2)
  1. CIPROFLOXACIN. [Suspect]
     Active Substance: CIPROFLOXACIN
     Indication: WHITE BLOOD CELL COUNT INCREASED
     Route: 048
     Dates: start: 20130314, end: 201303
  2. CLONT (METRONIDAZOLE) [Suspect]
     Active Substance: METRONIDAZOLE
     Indication: WHITE BLOOD CELL COUNT INCREASED
     Route: 048
     Dates: start: 20130314, end: 201303

REACTIONS (56)
  - Toxicity to various agents [Unknown]
  - Hypokinesia [Unknown]
  - Dry eye [Unknown]
  - Hearing disability [Unknown]
  - Feeling abnormal [Unknown]
  - Psychotic disorder [Unknown]
  - Joint swelling [Unknown]
  - Sinusitis [Unknown]
  - Intentional self-injury [Unknown]
  - Oral disorder [Unknown]
  - Nodule [Unknown]
  - Visual acuity reduced [Unknown]
  - Electroencephalogram [Unknown]
  - Yersinia test positive [Unknown]
  - Thermal burn [Unknown]
  - Pain [Unknown]
  - Skin discomfort [Unknown]
  - Body temperature decreased [Unknown]
  - Panic attack [Unknown]
  - Swelling [Unknown]
  - Contusion [Unknown]
  - Muscle spasms [Unknown]
  - Micturition urgency [Unknown]
  - Palpitations [Unknown]
  - Heart rate increased [Unknown]
  - Nasal dryness [Unknown]
  - Disorientation [Unknown]
  - Alopecia [Unknown]
  - Suicidal ideation [Unknown]
  - Muscle atrophy [Unknown]
  - Oedema mouth [Unknown]
  - Restlessness [Unknown]
  - Insomnia [Unknown]
  - Platelet count increased [Unknown]
  - Hypotonia [Unknown]
  - Fungal infection [Unknown]
  - Movement disorder [Unknown]
  - Dry mouth [Unknown]
  - Nail ridging [Unknown]
  - Epstein-Barr virus infection [Unknown]
  - Illusion [Unknown]
  - Liver function test abnormal [Unknown]
  - Tunnel vision [Unknown]
  - Cyst [Unknown]
  - Gingival recession [Unknown]
  - Diarrhoea [Unknown]
  - Skin burning sensation [Unknown]
  - Anxiety [Unknown]
  - Lymphocyte count decreased [Unknown]
  - Nerve conduction studies [Unknown]
  - Mycoplasma test positive [Unknown]
  - Blood count abnormal [Unknown]
  - Hot flush [Unknown]
  - Disturbance in attention [Unknown]
  - Immunoglobulins decreased [Unknown]
  - Cardiovascular disorder [Unknown]

NARRATIVE: CASE EVENT DATE: 201303
